FAERS Safety Report 12706500 (Version 4)
Quarter: 2016Q3

REPORT INFORMATION
  Report Type: Spontaneous
  Country: US (occurrence: US)
  Receive Date: 20160901
  Receipt Date: 20160928
  Transmission Date: 20161109
  Serious: Yes (Death)
  Sender: FDA-Public Use
  Company Number: US-JNJFOC-20160825797

PATIENT
  Age: 30 Year
  Sex: Male
  Weight: 72.58 kg

DRUGS (2)
  1. IMODIUM [Suspect]
     Active Substance: LOPERAMIDE HYDROCHLORIDE
     Indication: DIARRHOEA
     Dosage: AT A TIME
     Route: 048
     Dates: end: 20160723
  2. IMODIUM [Suspect]
     Active Substance: LOPERAMIDE HYDROCHLORIDE
     Indication: ABDOMINAL PAIN UPPER
     Dosage: AT A TIME
     Route: 048
     Dates: end: 20160723

REACTIONS (6)
  - Dyspnoea [Unknown]
  - Brain death [Fatal]
  - Eye movement disorder [Unknown]
  - Cyanosis [Unknown]
  - Loss of consciousness [Unknown]
  - Infrequent bowel movements [Unknown]

NARRATIVE: CASE EVENT DATE: 20160724
